FAERS Safety Report 11939712 (Version 2)
Quarter: 2016Q1

REPORT INFORMATION
  Report Type: Spontaneous
  Country: US (occurrence: US)
  Receive Date: 20160122
  Receipt Date: 20160304
  Transmission Date: 20160526
  Serious: Yes (Hospitalization, Other)
  Sender: FDA-Public Use
  Company Number: US-JNJFOC-20160112439

PATIENT
  Age: 47 Year
  Sex: Female

DRUGS (2)
  1. COUMADIN [Suspect]
     Active Substance: WARFARIN SODIUM
     Indication: PULMONARY EMBOLISM
     Route: 065
  2. XARELTO [Suspect]
     Active Substance: RIVAROXABAN
     Indication: PULMONARY EMBOLISM
     Route: 048
     Dates: end: 201601

REACTIONS (2)
  - Vaginal haemorrhage [Recovering/Resolving]
  - Hepatic failure [Recovering/Resolving]

NARRATIVE: CASE EVENT DATE: 201601
